FAERS Safety Report 10868150 (Version 1)
Quarter: 2015Q1

REPORT INFORMATION
  Report Type: Spontaneous
  Country: US (occurrence: US)
  Receive Date: 20150225
  Receipt Date: 20150225
  Transmission Date: 20150721
  Serious: No
  Sender: FDA-Public Use
  Company Number: US-ASTRAZENECA-2015SE15398

PATIENT
  Age: 68 Year
  Sex: Male
  Weight: 81.6 kg

DRUGS (2)
  1. CRESTOR [Suspect]
     Active Substance: ROSUVASTATIN CALCIUM
     Indication: BLOOD CHOLESTEROL INCREASED
     Route: 048
     Dates: start: 20150211
  2. CRESTOR [Suspect]
     Active Substance: ROSUVASTATIN CALCIUM
     Indication: BLOOD CHOLESTEROL INCREASED
     Route: 048
     Dates: start: 2014, end: 20150211

REACTIONS (6)
  - Pain [Unknown]
  - Retching [Unknown]
  - Arthralgia [Unknown]
  - Headache [Unknown]
  - Irritability [Unknown]
  - Asthenia [Unknown]

NARRATIVE: CASE EVENT DATE: 2015
